FAERS Safety Report 6078463-8 (Version None)
Quarter: 2009Q1

REPORT INFORMATION
  Report Type: 
  Country: None (occurrence: None)
  Receive Date: 20090212
  Receipt Date: 20090212
  Transmission Date: 20090719
  Serious: Yes (Other)
  Sender: FDA-Public Use
  Company Number: None

PATIENT
  Age: 63 Year
  Sex: Male
  Weight: 77.1115 kg

DRUGS (1)
  1. BUPROPION 150MG VA [Suspect]
     Indication: DEPRESSION
     Dosage: 150MG 2 TIMES DAILY PO
     Route: 048
     Dates: start: 20081005, end: 20081008

REACTIONS (1)
  - TINNITUS [None]
